FAERS Safety Report 5612050-8 (Version None)
Quarter: 2008Q1

REPORT INFORMATION
  Report Type: 
  Country: None (occurrence: None)
  Receive Date: 20080204
  Receipt Date: 20080128
  Transmission Date: 20080703
  Serious: Yes (Other)
  Sender: FDA-Public Use
  Company Number: PHBS2008HU01457

PATIENT
  Age: 71 Year
  Sex: Male

DRUGS (3)
  1. STALEVO 100 [Suspect]
     Indication: PARKINSON'S DISEASE
     Dosage: 200/150/37.5 MG QID
     Route: 048
     Dates: start: 20060101
  2. CARBAMAZEPINE [Suspect]
     Indication: EPILEPSY
  3. OXCARBAZEPINE [Suspect]
     Indication: EPILEPSY
     Dosage: 900 MG/D

REACTIONS (9)
  - AGITATION [None]
  - ANXIETY [None]
  - DIZZINESS [None]
  - EPILEPSY [None]
  - GRAND MAL CONVULSION [None]
  - HALLUCINATION, VISUAL [None]
  - LACUNAR INFARCTION [None]
  - MENTAL DISORDER [None]
  - PSYCHOTIC DISORDER [None]
